FAERS Safety Report 13417625 (Version 2)
Quarter: 2017Q2

REPORT INFORMATION
  Report Type: Report from Study
  Country: US (occurrence: US)
  Receive Date: 20170407
  Receipt Date: 20170512
  Transmission Date: 20170830
  Serious: Yes (Hospitalization)
  Sender: FDA-Public Use
  Company Number: US-ACTELION-A-US2017-152056

PATIENT
  Age: 52 Year
  Sex: Male

DRUGS (15)
  1. SILDENAFIL. [Concomitant]
     Active Substance: SILDENAFIL
     Indication: PULMONARY ARTERIAL HYPERTENSION
     Dosage: 20 MG, TID
  2. POTASSIUM [Concomitant]
     Active Substance: POTASSIUM
  3. AMIODARONE [Concomitant]
     Active Substance: AMIODARONE
  4. LEVOTHYROXINE. [Concomitant]
     Active Substance: LEVOTHYROXINE
  5. ASCORBIC ACID. [Concomitant]
     Active Substance: ASCORBIC ACID
  6. LAMICTAL [Concomitant]
     Active Substance: LAMOTRIGINE
  7. BUMEX [Concomitant]
     Active Substance: BUMETANIDE
  8. TRACLEER [Suspect]
     Active Substance: BOSENTAN
     Indication: PULMONARY ARTERIAL HYPERTENSION
     Dosage: 125 MG, BID
     Route: 048
     Dates: start: 20140203
  9. FLOLAN [Concomitant]
     Active Substance: EPOPROSTENOL SODIUM
     Dosage: 35 NG/KG, PER MIN
     Route: 042
  10. COLACE [Concomitant]
     Active Substance: DOCUSATE SODIUM
  11. SENOKOT [Concomitant]
     Active Substance: SENNOSIDES
  12. DOBUTAMINE [Concomitant]
     Active Substance: DOBUTAMINE\DOBUTAMINE HYDROCHLORIDE
  13. MORPHINE [Concomitant]
     Active Substance: MORPHINE
  14. ZOFRAN [Concomitant]
     Active Substance: ONDANSETRON HYDROCHLORIDE
  15. NORCO [Concomitant]
     Active Substance: ACETAMINOPHEN\HYDROCODONE BITARTRATE

REACTIONS (8)
  - Cough [Unknown]
  - Fluid retention [Recovering/Resolving]
  - Respiratory tract infection bacterial [Unknown]
  - Pneumonia [Unknown]
  - Respiratory tract infection viral [Unknown]
  - Cardiac failure [Unknown]
  - Haemoptysis [Recovered/Resolved]
  - Blood bilirubin increased [Unknown]

NARRATIVE: CASE EVENT DATE: 20170325
